FAERS Safety Report 11114232 (Version 1)
Quarter: 2015Q2

REPORT INFORMATION
  Report Type: Spontaneous
  Country: BR (occurrence: BR)
  Receive Date: 20150514
  Receipt Date: 20150514
  Transmission Date: 20150821
  Serious: Yes (Hospitalization)
  Sender: FDA-Public Use
  Company Number: BR-B.I. PHARMACEUTICALS,INC./RIDGEFIELD-2015-BI-25013BR

PATIENT
  Sex: Male
  Weight: 58 kg

DRUGS (7)
  1. OXIGEN [Concomitant]
     Indication: CHRONIC OBSTRUCTIVE PULMONARY DISEASE
     Route: 055
     Dates: start: 201305
  2. SPIRIVA RESPIMAT [Suspect]
     Active Substance: TIOTROPIUM BROMIDE
     Indication: CHRONIC OBSTRUCTIVE PULMONARY DISEASE
     Dosage: 1 PUF
     Route: 055
     Dates: start: 201210
  3. AMINOFILINA [Concomitant]
     Active Substance: AMINOPHYLLINE
     Indication: BRONCHITIS
     Dosage: 200 MG
     Route: 048
     Dates: start: 201411
  4. AMINOFILINA [Concomitant]
     Active Substance: AMINOPHYLLINE
     Indication: DYSPNOEA
  5. SPIRIVA RESPIMAT [Suspect]
     Active Substance: TIOTROPIUM BROMIDE
     Dosage: 2 PUF
     Route: 055
     Dates: start: 201210
  6. SERETID [Concomitant]
     Indication: CHRONIC OBSTRUCTIVE PULMONARY DISEASE
     Dosage: STRENGTH: 50/250MG; DOSE PER APPLICATION: 100/500MG
     Route: 055
     Dates: start: 2012
  7. FORASEQ [Concomitant]
     Active Substance: BUDESONIDE\FORMOTEROL FUMARATE
     Indication: CHRONIC OBSTRUCTIVE PULMONARY DISEASE
     Dosage: DOSE PER APPLICATION: 12/400MG; DAILY DOSE: 12/400MG
     Route: 055
     Dates: start: 201503

REACTIONS (8)
  - Bronchial obstruction [Not Recovered/Not Resolved]
  - Chronic obstructive pulmonary disease [Unknown]
  - Dry mouth [Not Recovered/Not Resolved]
  - Dysphonia [Not Recovered/Not Resolved]
  - Anxiety [Not Recovered/Not Resolved]
  - Gastrooesophageal reflux disease [Not Recovered/Not Resolved]
  - Pneumonia [Unknown]
  - Tachycardia [Not Recovered/Not Resolved]

NARRATIVE: CASE EVENT DATE: 2013
